FAERS Safety Report 9977629 (Version 2)
Quarter: 2014Q1

REPORT INFORMATION
  Report Type: Report from Study
  Country: US (occurrence: US)
  Receive Date: 20140306
  Receipt Date: 20140306
  Transmission Date: 20141002
  Serious: Yes (Other)
  Sender: FDA-Public Use
  Company Number: US-ABBVIE-13P-163-1162807-00

PATIENT
  Sex: Male

DRUGS (7)
  1. HUMIRA [Suspect]
     Indication: PSORIATIC ARTHROPATHY
  2. METFORMIN [Concomitant]
     Indication: DIABETES MELLITUS
     Dosage: 2 TABLETS, TWICE DAILY
  3. LOSARTAN [Concomitant]
     Indication: BLOOD PRESSURE ABNORMAL
  4. ACTOS [Concomitant]
     Indication: DIABETES MELLITUS
  5. ASPIRIN [Concomitant]
     Indication: PRODUCT USED FOR UNKNOWN INDICATION
  6. NAPROXEN [Concomitant]
     Indication: PRODUCT USED FOR UNKNOWN INDICATION
     Dosage: 2 TWICE DAILY
  7. PREVACID [Concomitant]
     Indication: GASTROOESOPHAGEAL REFLUX DISEASE
     Dosage: ONCE DAILY

REACTIONS (7)
  - Arthroscopy [Unknown]
  - Atypical pneumonia [Unknown]
  - Hypersensitivity [Unknown]
  - Psoriasis [Unknown]
  - Incorrect dose administered [Unknown]
  - Device malfunction [Unknown]
  - Needle issue [Unknown]
